FAERS Safety Report 6980609-1 (Version None)
Quarter: 2010Q3

REPORT INFORMATION
  Report Type: 
  Country: None (occurrence: None)
  Receive Date: 20100914
  Receipt Date: 20100907
  Transmission Date: 20110219
  Serious: Yes (Hospitalization)
  Sender: FDA-Public Use
  Company Number: US-SANOFI-AVENTIS-2010SA054325

PATIENT
  Age: 59 Year
  Sex: Male

DRUGS (4)
  1. LANTUS [Suspect]
     Dosage: DOSE:30 UNIT(S)
     Route: 058
     Dates: end: 20100830
  2. LANTUS [Suspect]
     Dosage: DOSE:15 UNIT(S)
     Route: 058
     Dates: start: 20100830
  3. OPTICLICK [Suspect]
     Dosage: DOSE:30 UNIT(S)
     Route: 058
     Dates: end: 20100830
  4. OPTICLICK [Suspect]
     Dosage: DOSE:15 UNIT(S)
     Route: 058
     Dates: start: 20100830

REACTIONS (2)
  - BLOOD GLUCOSE INCREASED [None]
  - CEREBROVASCULAR ACCIDENT [None]
